FAERS Safety Report 15311889 (Version 1)
Quarter: 2018Q3

REPORT INFORMATION
  Report Type: Spontaneous
  Country: GB (occurrence: GB)
  Receive Date: 20180823
  Receipt Date: 20180823
  Transmission Date: 20181010
  Serious: Yes (Other)
  Sender: FDA-Public Use
  Company Number: GB-ALLERGAN-1841052US

PATIENT
  Sex: Female

DRUGS (1)
  1. ACAMPROSATE CALCIUM ? BP [Suspect]
     Active Substance: ACAMPROSATE CALCIUM
     Indication: PRODUCT USED FOR UNKNOWN INDICATION
     Dosage: 333 MG, UNKNOWN
     Route: 065

REACTIONS (1)
  - Tooth abscess [Unknown]

NARRATIVE: CASE EVENT DATE: 20180815
